FAERS Safety Report 6755849-7 (Version None)
Quarter: 2010Q2

REPORT INFORMATION
  Report Type: 
  Country: None (occurrence: None)
  Receive Date: 20100604
  Receipt Date: 20100525
  Transmission Date: 20101027
  Serious: Yes (Hospitalization, Other)
  Sender: FDA-Public Use
  Company Number: US-JNJFOC-20100509989

PATIENT
  Sex: Male
  Weight: 40 kg

DRUGS (6)
  1. REMICADE [Suspect]
     Indication: CROHN'S DISEASE
     Route: 042
  2. REMICADE [Suspect]
     Route: 042
  3. PREDNISONE TAB [Concomitant]
  4. MERCAPTOPURINE [Concomitant]
  5. METRONIDAZOLE [Concomitant]
  6. PROTONIX [Concomitant]

REACTIONS (3)
  - ABDOMINAL PAIN [None]
  - MENTAL STATUS CHANGES [None]
  - SYNCOPE [None]
